FAERS Safety Report 5062554-4 (Version None)
Quarter: 2006Q3

REPORT INFORMATION
  Report Type: 
  Country: None (occurrence: None)
  Receive Date: 20060726
  Receipt Date: 20060719
  Transmission Date: 20061208
  Serious: Yes (Other)
  Sender: FDA-Public Use
  Company Number: US-BRISTOL-MYERS SQUIBB COMPANY-13447669

PATIENT
  Sex: Male

DRUGS (2)
  1. ERBITUX [Suspect]
     Dosage: 100 MG/50 ML
     Route: 042
     Dates: start: 20060101, end: 20060101
  2. RADIATION THERAPY [Concomitant]

REACTIONS (2)
  - LARYNGEAL OEDEMA [None]
  - MUCOSAL INFLAMMATION [None]
